FAERS Safety Report 23480062 (Version 2)
Quarter: 2025Q1

REPORT INFORMATION
  Report Type: Report from Study
  Country: US (occurrence: US)
  Receive Date: 20240205
  Receipt Date: 20250115
  Transmission Date: 20250409
  Serious: Yes (Other)
  Sender: HRA PHARMA
  Company Number: US-ORG100014127-2023001002

PATIENT
  Age: 43 Year
  Sex: Male

DRUGS (21)
  1. LYSODREN [Suspect]
     Active Substance: MITOTANE
     Indication: Adrenocortical carcinoma
     Route: 048
     Dates: start: 20230815, end: 2023
  2. LYSODREN [Suspect]
     Active Substance: MITOTANE
     Indication: Adrenocortical carcinoma
     Dosage: 05 TABLETS TWICE DAILY FOR 07 DAYS
     Route: 048
     Dates: start: 2023, end: 2023
  3. LYSODREN [Suspect]
     Active Substance: MITOTANE
     Indication: Adrenocortical carcinoma
     Dosage: 07 TABLETS TWICE DAILY FOR 07 DAYS
     Route: 048
     Dates: start: 2023, end: 2023
  4. LYSODREN [Suspect]
     Active Substance: MITOTANE
     Indication: Adrenocortical carcinoma
     Dosage: 08 TABLETS TWICE DAILY FOR 07 DAYS
     Route: 048
     Dates: start: 2023, end: 2023
  5. LYSODREN [Suspect]
     Active Substance: MITOTANE
     Indication: Adrenocortical carcinoma
     Dosage: 09 TABLETS TWICE DAILY FOR 07 DAYS
     Route: 048
     Dates: start: 2023, end: 2023
  6. LYSODREN [Suspect]
     Active Substance: MITOTANE
     Indication: Adrenocortical carcinoma
     Dosage: 10 TABLETS TWICE DAILY FOR 07 DAYS
     Route: 048
     Dates: start: 2023, end: 2023
  7. ACETAMIN TAB 500MG [Concomitant]
     Indication: Product used for unknown indication
  8. CAFFEINE TAB 200MG [Concomitant]
     Indication: Product used for unknown indication
  9. KETOCONAZOLE SHA 2% [Concomitant]
     Indication: Product used for unknown indication
  10. SILDENAFIL TAB 50MG [Concomitant]
     Indication: Product used for unknown indication
  11. ZOLPIDEM TAB 10MG [Concomitant]
     Indication: Product used for unknown indication
  12. Warfarin Tab [Concomitant]
     Indication: Product used for unknown indication
  13. Warfarin Tab [Concomitant]
     Indication: Product used for unknown indication
  14. Metoprolol succinate tab 50 mg ER [Concomitant]
     Indication: Product used for unknown indication
  15. Atorvastatin tab 20 mg [Concomitant]
     Indication: Product used for unknown indication
  16. Escitalopram tab 20 mg/ 10 mg [Concomitant]
     Indication: Product used for unknown indication
  17. LEVOTHYROXIN TAB 100MCG [Concomitant]
     Indication: Product used for unknown indication
  18. Prednisone Tab  10 mg [Concomitant]
     Indication: Product used for unknown indication
  19. AMLODIPINE TAB 5MG [Concomitant]
     Indication: Product used for unknown indication
  20. Furosemide Tab 20 mg [Concomitant]
     Indication: Product used for unknown indication
  21. LOSARTAN POTASSIUM [Concomitant]
     Active Substance: LOSARTAN POTASSIUM
     Indication: Product used for unknown indication

REACTIONS (6)
  - Leukopenia [Not Recovered/Not Resolved]
  - Balance disorder [Not Recovered/Not Resolved]
  - Diarrhoea [Not Recovered/Not Resolved]
  - Dizziness [Recovered/Resolved]
  - Nausea [Not Recovered/Not Resolved]
  - Decreased appetite [Not Recovered/Not Resolved]

NARRATIVE: CASE EVENT DATE: 20230101
